FAERS Safety Report 16550675 (Version 1)
Quarter: 2019Q3

REPORT INFORMATION
  Report Type: Spontaneous
  Country: US (occurrence: US)
  Receive Date: 20190710
  Receipt Date: 20190710
  Transmission Date: 20191004
  Serious: No
  Sender: FDA-Public Use
  Company Number: US-APOTEX-2019AP016969

PATIENT
  Age: 52 Year
  Sex: Male

DRUGS (1)
  1. CIPROFLOXACIN. [Suspect]
     Active Substance: CIPROFLOXACIN
     Indication: TOOTH INFECTION
     Dosage: 1 DF, UNK
     Route: 048

REACTIONS (4)
  - Prescription drug used without a prescription [Unknown]
  - Fixed eruption [Recovered/Resolved]
  - Blister [Recovered/Resolved]
  - Eczema [Recovered/Resolved]
